FAERS Safety Report 4743741-9 (Version None)
Quarter: 2005Q3

REPORT INFORMATION
  Report Type: 
  Country: None (occurrence: None)
  Receive Date: 20050812
  Receipt Date: 20050606
  Transmission Date: 20060218
  Serious: Yes (Other)
  Sender: FDA-Public Use
  Company Number: GB-GLAXOSMITHKLINE-B0383998A

PATIENT
  Sex: Female

DRUGS (2)
  1. SEROXAT [Suspect]
     Dosage: 20MG UNKNOWN
     Route: 065
  2. VENLAFAXINE [Concomitant]
     Dosage: 37.5MG TWICE PER DAY
     Route: 065
     Dates: start: 19970326

REACTIONS (9)
  - ABNORMAL DREAMS [None]
  - COMPLETED SUICIDE [None]
  - DIZZINESS [None]
  - HEADACHE [None]
  - HYPERHIDROSIS [None]
  - ILL-DEFINED DISORDER [None]
  - MOOD ALTERED [None]
  - NAUSEA [None]
  - PALPITATIONS [None]
